FAERS Safety Report 24417297 (Version 2)
Quarter: 2025Q2

REPORT INFORMATION
  Report Type: Report from Study
  Country: AU (occurrence: AU)
  Receive Date: 20241009
  Receipt Date: 20250410
  Transmission Date: 20250717
  Serious: Yes (Hospitalization, Other)
  Sender: MYLAN
  Company Number: AU-MYLANLABS-2024M1090839

PATIENT
  Age: 66 Year
  Sex: Female
  Weight: 73 kg

DRUGS (48)
  1. ALLOPURINOL [Suspect]
     Active Substance: ALLOPURINOL
     Indication: Product used for unknown indication
  2. ALLOPURINOL [Suspect]
     Active Substance: ALLOPURINOL
     Route: 065
  3. ALLOPURINOL [Suspect]
     Active Substance: ALLOPURINOL
     Route: 065
  4. ALLOPURINOL [Suspect]
     Active Substance: ALLOPURINOL
  5. SULFAMETHOXAZOLE\TRIMETHOPRIM [Suspect]
     Active Substance: SULFAMETHOXAZOLE\TRIMETHOPRIM
     Indication: Product used for unknown indication
  6. SULFAMETHOXAZOLE\TRIMETHOPRIM [Suspect]
     Active Substance: SULFAMETHOXAZOLE\TRIMETHOPRIM
     Route: 065
  7. SULFAMETHOXAZOLE\TRIMETHOPRIM [Suspect]
     Active Substance: SULFAMETHOXAZOLE\TRIMETHOPRIM
     Route: 065
  8. SULFAMETHOXAZOLE\TRIMETHOPRIM [Suspect]
     Active Substance: SULFAMETHOXAZOLE\TRIMETHOPRIM
  9. BORTEZOMIB [Concomitant]
     Active Substance: BORTEZOMIB
     Dates: start: 20240814, end: 20240927
  10. BORTEZOMIB [Concomitant]
     Active Substance: BORTEZOMIB
     Route: 065
     Dates: start: 20240814, end: 20240927
  11. BORTEZOMIB [Concomitant]
     Active Substance: BORTEZOMIB
     Route: 065
     Dates: start: 20240814, end: 20240927
  12. BORTEZOMIB [Concomitant]
     Active Substance: BORTEZOMIB
     Dates: start: 20240814, end: 20240927
  13. CYCLOPHOSPHAMIDE [Concomitant]
     Active Substance: CYCLOPHOSPHAMIDE
     Dates: start: 20240814, end: 20240927
  14. CYCLOPHOSPHAMIDE [Concomitant]
     Active Substance: CYCLOPHOSPHAMIDE
     Route: 065
     Dates: start: 20240814, end: 20240927
  15. CYCLOPHOSPHAMIDE [Concomitant]
     Active Substance: CYCLOPHOSPHAMIDE
     Route: 065
     Dates: start: 20240814, end: 20240927
  16. CYCLOPHOSPHAMIDE [Concomitant]
     Active Substance: CYCLOPHOSPHAMIDE
     Dates: start: 20240814, end: 20240927
  17. DARATUMUMAB [Concomitant]
     Active Substance: DARATUMUMAB
  18. DARATUMUMAB [Concomitant]
     Active Substance: DARATUMUMAB
     Route: 065
  19. DARATUMUMAB [Concomitant]
     Active Substance: DARATUMUMAB
     Route: 065
  20. DARATUMUMAB [Concomitant]
     Active Substance: DARATUMUMAB
  21. DEXAMETHASONE [Concomitant]
     Active Substance: DEXAMETHASONE
     Dates: start: 20240814, end: 20240927
  22. DEXAMETHASONE [Concomitant]
     Active Substance: DEXAMETHASONE
     Route: 065
     Dates: start: 20240814, end: 20240927
  23. DEXAMETHASONE [Concomitant]
     Active Substance: DEXAMETHASONE
     Route: 065
     Dates: start: 20240814, end: 20240927
  24. DEXAMETHASONE [Concomitant]
     Active Substance: DEXAMETHASONE
     Dates: start: 20240814, end: 20240927
  25. BUMETANIDE [Concomitant]
     Active Substance: BUMETANIDE
  26. BUMETANIDE [Concomitant]
     Active Substance: BUMETANIDE
  27. BUMETANIDE [Concomitant]
     Active Substance: BUMETANIDE
     Route: 065
  28. BUMETANIDE [Concomitant]
     Active Substance: BUMETANIDE
     Route: 065
  29. BUMETANIDE [Concomitant]
     Active Substance: BUMETANIDE
     Dosage: 1 MILLIGRAM, TID
  30. BUMETANIDE [Concomitant]
     Active Substance: BUMETANIDE
     Dosage: 1 MILLIGRAM, TID
  31. BUMETANIDE [Concomitant]
     Active Substance: BUMETANIDE
     Dosage: 1 MILLIGRAM, TID
     Route: 065
  32. BUMETANIDE [Concomitant]
     Active Substance: BUMETANIDE
     Dosage: 1 MILLIGRAM, TID
     Route: 065
  33. BUMETANIDE [Concomitant]
     Active Substance: BUMETANIDE
  34. BUMETANIDE [Concomitant]
     Active Substance: BUMETANIDE
     Route: 065
  35. BUMETANIDE [Concomitant]
     Active Substance: BUMETANIDE
  36. BUMETANIDE [Concomitant]
     Active Substance: BUMETANIDE
     Route: 065
  37. BISOPROLOL [Concomitant]
     Active Substance: BISOPROLOL
  38. BISOPROLOL [Concomitant]
     Active Substance: BISOPROLOL
     Route: 065
  39. BISOPROLOL [Concomitant]
     Active Substance: BISOPROLOL
     Route: 065
  40. BISOPROLOL [Concomitant]
     Active Substance: BISOPROLOL
  41. METOCLOPRAMIDE [Concomitant]
     Active Substance: METOCLOPRAMIDE
  42. METOCLOPRAMIDE [Concomitant]
     Active Substance: METOCLOPRAMIDE
     Route: 065
  43. METOCLOPRAMIDE [Concomitant]
     Active Substance: METOCLOPRAMIDE
     Route: 065
  44. METOCLOPRAMIDE [Concomitant]
     Active Substance: METOCLOPRAMIDE
  45. VALACYCLOVIR HYDROCHLORIDE [Concomitant]
     Active Substance: VALACYCLOVIR HYDROCHLORIDE
  46. VALACYCLOVIR HYDROCHLORIDE [Concomitant]
     Active Substance: VALACYCLOVIR HYDROCHLORIDE
     Route: 065
  47. VALACYCLOVIR HYDROCHLORIDE [Concomitant]
     Active Substance: VALACYCLOVIR HYDROCHLORIDE
     Route: 065
  48. VALACYCLOVIR HYDROCHLORIDE [Concomitant]
     Active Substance: VALACYCLOVIR HYDROCHLORIDE

REACTIONS (3)
  - Cardiac failure [Recovered/Resolved with Sequelae]
  - Anaemia [Recovered/Resolved]
  - Rash erythematous [Recovered/Resolved]

NARRATIVE: CASE EVENT DATE: 20240919
